FAERS Safety Report 7212982-3 (Version None)
Quarter: 2011Q1

REPORT INFORMATION
  Report Type: 
  Country: None (occurrence: None)
  Receive Date: 20110106
  Receipt Date: 20110103
  Transmission Date: 20110831
  Serious: Yes (Death)
  Sender: FDA-Public Use
  Company Number: A0901518A

PATIENT
  Sex: Male
  Weight: 88 kg

DRUGS (2)
  1. RADIATION [Suspect]
     Indication: METASTASES TO CENTRAL NERVOUS SYSTEM
     Dosage: 3GY PER DAY
     Route: 061
     Dates: start: 20101213, end: 20101223
  2. TOPOTECAN [Suspect]
     Indication: METASTASES TO CENTRAL NERVOUS SYSTEM
     Dosage: 1.1MGM2 PER DAY
     Route: 048
     Dates: start: 20101213, end: 20101223

REACTIONS (1)
  - NEUTROPENIA [None]
